FAERS Safety Report 19123079 (Version 5)
Quarter: 2022Q2

REPORT INFORMATION
  Report Type: Spontaneous
  Country: US (occurrence: US)
  Receive Date: 20210412
  Receipt Date: 20220412
  Transmission Date: 20220720
  Serious: No
  Sender: FDA-Public Use
  Company Number: US-PFIZER INC-2021291068

PATIENT
  Age: 71 Year
  Sex: Female
  Weight: 92.99 kg

DRUGS (7)
  1. XELJANZ XR [Suspect]
     Active Substance: TOFACITINIB CITRATE
     Indication: Rheumatoid arthritis
     Dosage: 11 MG, 1X/DAY
     Route: 048
  2. XELJANZ XR [Suspect]
     Active Substance: TOFACITINIB CITRATE
     Dosage: 11 MG, 1X/DAY (WITH WATER ONCE A DAY)
  3. XELJANZ XR [Suspect]
     Active Substance: TOFACITINIB CITRATE
     Dosage: UNK
     Dates: end: 20220303
  4. LISINOPRIL ZYDUS [Concomitant]
     Indication: Hypertension
     Dosage: 20 MG, DAILY
  5. LISINOPRIL ZYDUS [Concomitant]
     Indication: Renal disorder
  6. PERCOCET [Concomitant]
     Active Substance: ACETAMINOPHEN\OXYCODONE HYDROCHLORIDE
     Indication: Pain
     Dosage: 10 MG, 4X/DAY
  7. PREDNISONE [Concomitant]
     Active Substance: PREDNISONE
     Indication: Pain
     Dosage: 20 MG (TAKING BROKEN HALF IN A DAY)

REACTIONS (15)
  - Product dose omission issue [Unknown]
  - Musculoskeletal stiffness [Unknown]
  - Pain in extremity [Not Recovered/Not Resolved]
  - Arthralgia [Unknown]
  - Gingivitis [Recovering/Resolving]
  - Hypertension [Recovering/Resolving]
  - Joint swelling [Unknown]
  - Depression [Unknown]
  - Gingival pain [Unknown]
  - Peripheral swelling [Not Recovered/Not Resolved]
  - Headache [Unknown]
  - Pain [Unknown]
  - Swelling [Unknown]
  - Nasopharyngitis [Unknown]
  - Feeling abnormal [Unknown]

NARRATIVE: CASE EVENT DATE: 20210501
